FAERS Safety Report 13171028 (Version 2)
Quarter: 2017Q1

REPORT INFORMATION
  Report Type: Spontaneous
  Country: DE (occurrence: DE)
  Receive Date: 20170201
  Receipt Date: 20170310
  Transmission Date: 20170428
  Serious: Yes (Hospitalization)
  Sender: FDA-Public Use
  Company Number: DE-SUN PHARMACEUTICAL INDUSTRIES LTD-2017RR-132425

PATIENT
  Age: 18 Year
  Sex: Female

DRUGS (2)
  1. NUROFEN 200 MG [Concomitant]
     Indication: DYSMENORRHOEA
     Dosage: ON DEMAND
     Route: 065
  2. CLARITHROMYCIN BASICS 250MG FILMTABLETTEN [Suspect]
     Active Substance: CLARITHROMYCIN
     Indication: ANGINA PECTORIS
     Dosage: 250 MG, BID
     Route: 048
     Dates: start: 20160106, end: 20160109

REACTIONS (3)
  - Localised oedema [Unknown]
  - Eye oedema [Unknown]
  - Oedema peripheral [Unknown]
